FAERS Safety Report 5070216-2 (Version None)
Quarter: 2006Q3

REPORT INFORMATION
  Report Type: 
  Country: None (occurrence: None)
  Receive Date: 20060731
  Receipt Date: 20060719
  Transmission Date: 20061208
  Serious: Yes (Life-Threatening)
  Sender: FDA-Public Use
  Company Number: DE-2006-018052

PATIENT
  Age: 68 Year
  Sex: Male

DRUGS (1)
  1. MAGNEVIST [Suspect]
     Indication: ANGIOGRAM
     Dosage: 15 ML, 1 DOSE, INTRAVENOUS
     Route: 042
     Dates: start: 20060705, end: 20060705

REACTIONS (8)
  - CARDIAC MASSAGE [None]
  - CLAUSTROPHOBIA [None]
  - CONTRAST MEDIA REACTION [None]
  - DYSPNOEA [None]
  - MYDRIASIS [None]
  - PULMONARY OEDEMA [None]
  - PUPIL FIXED [None]
  - SHOCK [None]
